FAERS Safety Report 6340129-4 (Version None)
Quarter: 2009Q3

REPORT INFORMATION
  Report Type: 
  Country: None (occurrence: None)
  Receive Date: 20090903
  Receipt Date: 20090902
  Transmission Date: 20100115
  Serious: Yes (Hospitalization, Other)
  Sender: FDA-Public Use
  Company Number: US-MERCK-0810USA03446

PATIENT
  Age: 59 Year
  Sex: Female

DRUGS (2)
  1. FOSAMAX [Suspect]
     Indication: OSTEOPENIA
     Route: 048
     Dates: start: 20060228, end: 20080428
  2. ATENOLOL [Concomitant]
     Route: 065
     Dates: start: 20000101

REACTIONS (8)
  - BLOOD CHOLESTEROL INCREASED [None]
  - FISTULA DISCHARGE [None]
  - HEADACHE [None]
  - IMPAIRED HEALING [None]
  - JAW DISORDER [None]
  - ORAL INFECTION [None]
  - OSTEONECROSIS [None]
  - SPINAL CORD DISORDER [None]
